FAERS Safety Report 4389140-3 (Version None)
Quarter: 2004Q3

REPORT INFORMATION
  Report Type: 
  Country: None (occurrence: None)
  Receive Date: 20040702
  Receipt Date: 20030929
  Transmission Date: 20050211
  Serious: No
  Sender: FDA-Public Use
  Company Number: US012158

PATIENT
  Age: 46 Year
  Sex: Female

DRUGS (5)
  1. PARNATE [Suspect]
     Indication: ILL-DEFINED DISORDER
     Route: 048
  2. NO DOZ [Suspect]
  3. TEA [Suspect]
  4. COFFEE [Suspect]
     Indication: DRUG USE FOR UNKNOWN INDICATION
     Route: 048
  5. PROVIGIL [Suspect]
     Route: 065

REACTIONS (4)
  - HEART RATE INCREASED [None]
  - HYPERTENSION [None]
  - IRRITABILITY [None]
  - PALPITATIONS [None]
